FAERS Safety Report 15789444 (Version 1)
Quarter: 2019Q1

REPORT INFORMATION
  Report Type: Spontaneous
  Country: US (occurrence: US)
  Receive Date: 20190103
  Receipt Date: 20190103
  Transmission Date: 20190417
  Serious: Yes (Other)
  Sender: FDA-Public Use
  Company Number: None

PATIENT
  Age: 25 Year
  Sex: Female
  Weight: 72.9 kg

DRUGS (4)
  1. MISOPROSTOL 200 MCG [Suspect]
     Active Substance: MISOPROSTOL
     Indication: PRODUCT USED FOR UNKNOWN INDICATION
     Dosage: ?          QUANTITY:4 TABLET(S);?
     Route: 048
     Dates: start: 20181231, end: 20190103
  2. IBUPROFEN. [Concomitant]
     Active Substance: IBUPROFEN
  3. MISOPROSTOL. [Concomitant]
     Active Substance: MISOPROSTOL
  4. BACTRIM DS [Concomitant]
     Active Substance: SULFAMETHOXAZOLE\TRIMETHOPRIM

REACTIONS (5)
  - Nausea [None]
  - Dizziness [None]
  - Somnolence [None]
  - Maternal exposure during breast feeding [None]
  - Diarrhoea [None]

NARRATIVE: CASE EVENT DATE: 20190102
